FAERS Safety Report 4971453-5 (Version None)
Quarter: 2006Q2

REPORT INFORMATION
  Report Type: 
  Country: None (occurrence: None)
  Receive Date: 20060411
  Receipt Date: 20060411
  Transmission Date: 20061013
  Serious: Yes (Other)
  Sender: FDA-Public Use
  Company Number: None

PATIENT
  Age: 54 Year
  Sex: Female
  Weight: 79.3795 kg

DRUGS (1)
  1. NEUTROSPEC [Suspect]
     Indication: OSTEOMYELITIS
     Dosage: ONE TIME ONLY  IV BOLUS
     Route: 040
     Dates: start: 20050913, end: 20050913

REACTIONS (6)
  - BLOOD PRESSURE SYSTOLIC INCREASED [None]
  - FLUSHING [None]
  - HEADACHE [None]
  - HEART RATE INCREASED [None]
  - RETCHING [None]
  - VISION BLURRED [None]
